FAERS Safety Report 19278705 (Version 1)
Quarter: 2021Q2

REPORT INFORMATION
  Report Type: Spontaneous
  Country: US (occurrence: US)
  Receive Date: 20210519
  Receipt Date: 20210519
  Transmission Date: 20210717
  Serious: No
  Sender: FDA-Public Use
  Company Number: None

PATIENT
  Age: 21 Year
  Sex: Female
  Weight: 48.99 kg

DRUGS (1)
  1. MIRENA [Suspect]
     Active Substance: LEVONORGESTREL

REACTIONS (6)
  - Dyspareunia [None]
  - Device dislocation [None]
  - Abnormal uterine bleeding [None]
  - Pain [None]
  - Heavy menstrual bleeding [None]
  - Ovarian cyst [None]

NARRATIVE: CASE EVENT DATE: 20200812
